FAERS Safety Report 12068885 (Version 1)
Quarter: 2016Q1

REPORT INFORMATION
  Report Type: Spontaneous
  Country: US (occurrence: US)
  Receive Date: 20160211
  Receipt Date: 20160211
  Transmission Date: 20160526
  Serious: No
  Sender: FDA-Public Use
  Company Number: US-ASTRAZENECA-2016SE11693

PATIENT
  Sex: Female
  Weight: 113.4 kg

DRUGS (6)
  1. FLEXERIL [Concomitant]
     Active Substance: CYCLOBENZAPRINE HYDROCHLORIDE
     Dosage: TWO TIMES A DAY
  2. SAPHRIS [Concomitant]
     Active Substance: ASENAPINE MALEATE
     Indication: POST-TRAUMATIC STRESS DISORDER
     Dosage: DAILY
  3. MOVANTIK [Suspect]
     Active Substance: NALOXEGOL OXALATE
     Indication: CONSTIPATION
     Route: 048
     Dates: start: 20160201
  4. OXYCODONE [Concomitant]
     Active Substance: OXYCODONE
     Dosage: TAKEN UP TO 3 TIMES PER DAY; AS REQUIRED
  5. MOVANTIK [Suspect]
     Active Substance: NALOXEGOL OXALATE
     Indication: CONSTIPATION
     Route: 048
  6. OXYCONTIN [Concomitant]
     Active Substance: OXYCODONE HYDROCHLORIDE
     Dosage: TWO TIMES A DAY

REACTIONS (2)
  - Abdominal pain [Unknown]
  - Drug dose omission [Recovered/Resolved]
